FAERS Safety Report 6600387-5 (Version None)
Quarter: 2010Q1

REPORT INFORMATION
  Report Type: 
  Country: None (occurrence: None)
  Receive Date: 20100224
  Receipt Date: 20100216
  Transmission Date: 20100710
  Serious: Yes (Other)
  Sender: FDA-Public Use
  Company Number: GB-ASTRAZENECA-2010SE06806

PATIENT
  Age: 21 Year
  Sex: Female

DRUGS (2)
  1. QUETIAPINE [Suspect]
     Route: 048
     Dates: start: 20091101, end: 20100127
  2. MIRTAZAPINE [Concomitant]
     Indication: MAJOR DEPRESSION
     Route: 048
     Dates: start: 20080101

REACTIONS (2)
  - SELF ESTEEM DECREASED [None]
  - WEIGHT INCREASED [None]
